FAERS Safety Report 6254800-6 (Version None)
Quarter: 2009Q3

REPORT INFORMATION
  Report Type: 
  Country: None (occurrence: None)
  Receive Date: 20090702
  Receipt Date: 20090622
  Transmission Date: 20100115
  Serious: Yes (Hospitalization, Other)
  Sender: FDA-Public Use
  Company Number: US-PFIZER INC-2009232705

PATIENT
  Sex: Male
  Weight: 76.657 kg

DRUGS (5)
  1. LIPITOR [Suspect]
     Indication: BLOOD CHOLESTEROL INCREASED
     Dosage: DAILY
     Route: 048
  2. TOPROL-XL [Concomitant]
     Dosage: UNK
  3. ATACAND [Concomitant]
     Dosage: UNK
  4. OMEPRAZOLE [Concomitant]
     Dosage: UNK
  5. SOTALOL [Concomitant]
     Dosage: UNK

REACTIONS (4)
  - BLOOD PRESSURE INADEQUATELY CONTROLLED [None]
  - CORONARY ARTERY OCCLUSION [None]
  - DYSGEUSIA [None]
  - OSTEOARTHRITIS [None]
